FAERS Safety Report 9248190 (Version 1)
Quarter: 2013Q2

REPORT INFORMATION
  Report Type: Spontaneous
  Country: IT (occurrence: IT)
  Receive Date: 20130423
  Receipt Date: 20130423
  Transmission Date: 20140414
  Serious: Yes (Hospitalization)
  Sender: FDA-Public Use
  Company Number: IT-SANOFI-AVENTIS-2013SA040238

PATIENT
  Age: 88 Year
  Sex: Female

DRUGS (6)
  1. LASIX [Suspect]
     Indication: CARDIAC FAILURE
     Route: 048
     Dates: start: 20130211, end: 20130213
  2. MONOKET [Concomitant]
     Route: 048
  3. SINEMET [Concomitant]
     Route: 048
  4. CLEXANE [Concomitant]
     Dosage: STRENGTH: 2000 UI
     Route: 058
  5. CARVEDILOL [Concomitant]
     Route: 048
  6. TRITTICO [Concomitant]
     Route: 048

REACTIONS (1)
  - Dyspnoea at rest [Unknown]
